FAERS Safety Report 9552269 (Version 1)
Quarter: 2013Q3

REPORT INFORMATION
  Report Type: Spontaneous
  Country: US (occurrence: None)
  Receive Date: 20130923
  Receipt Date: 20130923
  Transmission Date: 20140515
  Serious: Yes (Hospitalization)
  Sender: FDA-Public Use
  Company Number: 2013-1038

PATIENT
  Age: 54 Year
  Sex: Female

DRUGS (7)
  1. KYPROLIS [Suspect]
     Indication: PLASMA CELL MYELOMA
     Route: 042
     Dates: start: 201305
  2. DEXAMETHASONE (DEXAMETHASONE) (DEXAMETHASONE) [Concomitant]
  3. NEXIUM [Concomitant]
  4. FLUOXETINE (FLUOXETINE) (FLUOXETINE) [Concomitant]
  5. BACTRIM DS (SULFAMETHOXAZOLE TRIMETHOPRIM) (SULFAMETHOXAZOLE, TRIMETHOPRIM) [Concomitant]
  6. VALACYCLOVIR (VALACICLOVIR HYDROCHLORIDE) (VALACICLOVIR HYDROCHLORIDE) [Concomitant]
  7. ZOFRAN (ONDANSETRON) (ONDANSETRON) [Concomitant]

REACTIONS (9)
  - Stem cell transplant [None]
  - Plasma cell myeloma recurrent [None]
  - Fatigue [None]
  - Weight increased [None]
  - Fluid retention [None]
  - Parainfluenzae virus infection [None]
  - Pneumonia [None]
  - Upper respiratory tract infection [None]
  - Body temperature increased [None]
